FAERS Safety Report 6194566-1 (Version None)
Quarter: 2009Q2

REPORT INFORMATION
  Report Type: 
  Country: None (occurrence: None)
  Receive Date: 20090519
  Receipt Date: 20090512
  Transmission Date: 20091009
  Serious: Yes (Death)
  Sender: FDA-Public Use
  Company Number: GB-ROCHE-631249

PATIENT
  Sex: Male
  Weight: 71 kg

DRUGS (3)
  1. CAPECITABINE [Suspect]
     Dosage: MOST RECENT DOSE GIVEN ON: 14 APR 2009 ROUTE AND FORM REPORTED AS PER PROTOCOL
     Route: 048
     Dates: start: 20090121
  2. CISPLATIN [Suspect]
     Dosage: MOST RECENT DOSE GIVEN ON: 25 MARCH 2009 ROUTE REPORTED AS PER PROTOCOL
     Route: 042
     Dates: start: 20090121
  3. EPIRUBICIN [Suspect]
     Dosage: MOST RECENT DOSE GIVEN ON: 25 MARCH 2009 ROUTE REPORTED AS PER PROTOCOL
     Route: 042
     Dates: start: 20090121

REACTIONS (1)
  - LARGE INTESTINE PERFORATION [None]
